FAERS Safety Report 18384872 (Version 4)
Quarter: 2022Q3

REPORT INFORMATION
  Report Type: Report from Study
  Country: PA (occurrence: PA)
  Receive Date: 20201014
  Receipt Date: 20220722
  Transmission Date: 20221026
  Serious: Yes (Life-Threatening, Hospitalization, Other)
  Sender: FDA-Public Use
  Company Number: NVSC2020PA272842

PATIENT
  Age: 66 Year
  Sex: Male
  Weight: 82 kg

DRUGS (11)
  1. EXFORGE [Suspect]
     Active Substance: AMLODIPINE BESYLATE\VALSARTAN
     Indication: Hypertension
     Dosage: 1 DOSAGE FORM (10/320 MG)
     Route: 065
     Dates: start: 2012, end: 20200708
  2. EXFORGE [Suspect]
     Active Substance: AMLODIPINE BESYLATE\VALSARTAN
     Dosage: 0.5 DOSAGE FORM (5/160), BID
     Route: 065
     Dates: start: 20200708
  3. EXFORGE [Suspect]
     Active Substance: AMLODIPINE BESYLATE\VALSARTAN
     Dosage: UNK, 10/320MG, APPROXIMATELY 8 YEARS AGO
     Route: 065
     Dates: end: 202007
  4. EXFORGE [Suspect]
     Active Substance: AMLODIPINE BESYLATE\VALSARTAN
     Dosage: UNK, 160/5MG, 1 IN THE MORNING AND 1 IN THE AFTERNOON
     Route: 065
     Dates: start: 202007
  5. EXFORGE [Suspect]
     Active Substance: AMLODIPINE BESYLATE\VALSARTAN
     Dosage: 1 DOSAGE FORM (160/5 MG) TOTAL DAULY DOSE 10MG/ 320 MG
     Route: 065
  6. EXFORGE [Suspect]
     Active Substance: AMLODIPINE BESYLATE\VALSARTAN
     Dosage: 2 DOSAGE FORM, QD (160/5 MG) APPROXIMATELY 1 YEAR AND A HALF AGO)
     Route: 065
     Dates: end: 20220720
  7. ROSUVASTATIN [Suspect]
     Active Substance: ROSUVASTATIN
     Indication: Product used for unknown indication
     Dosage: 10 MG
     Route: 065
  8. METFORMIN [Concomitant]
     Active Substance: METFORMIN HYDROCHLORIDE
     Indication: Diabetes mellitus
     Dosage: 850 MG, QD (ONCE A DAILY/ BREAKFAST)
     Route: 065
  9. RANITIDINE [Concomitant]
     Active Substance: RANITIDINE
     Indication: Chronic gastritis
     Dosage: 150 MG, QD
     Route: 065
  10. HEPARIN [Concomitant]
     Active Substance: HEPARIN SODIUM
     Indication: Product used for unknown indication
     Dosage: UNK
     Route: 042
  11. CAPTOPRIL [Concomitant]
     Active Substance: CAPTOPRIL
     Indication: Product used for unknown indication
     Dosage: 25 MG
     Route: 065

REACTIONS (42)
  - Infarction [Unknown]
  - Hypertensive crisis [Recovered/Resolved]
  - Acute myocardial infarction [Unknown]
  - Myocardial necrosis marker increased [Unknown]
  - Coronary artery occlusion [Unknown]
  - Coronary artery stenosis [Unknown]
  - Left ventricular hypertrophy [Unknown]
  - Systolic dysfunction [Unknown]
  - Diastolic dysfunction [Unknown]
  - Cardiac valve sclerosis [Unknown]
  - Atrial fibrillation [Unknown]
  - Blood pressure increased [Unknown]
  - Chest pain [Unknown]
  - Pulmonary arterial hypertension [Unknown]
  - Troponin T increased [Unknown]
  - Functional residual capacity decreased [Unknown]
  - Ventricular arrhythmia [Unknown]
  - Heart rate decreased [Unknown]
  - Mean cell haemoglobin decreased [Unknown]
  - Mean cell haemoglobin concentration decreased [Unknown]
  - Neutrophil count increased [Unknown]
  - Lymphocyte count decreased [Unknown]
  - Monocyte count increased [Unknown]
  - Eosinophil count increased [Unknown]
  - Blood creatine phosphokinase increased [Unknown]
  - Blood creatine phosphokinase MB increased [Unknown]
  - Mediastinal disorder [Unknown]
  - Troponin I increased [Unknown]
  - Blood lactate dehydrogenase increased [Unknown]
  - Blood sodium increased [Unknown]
  - High density lipoprotein decreased [Unknown]
  - Very low density lipoprotein decreased [Unknown]
  - Albumin globulin ratio increased [Unknown]
  - Ventricular extrasystoles [Unknown]
  - Hyperglycaemia [Unknown]
  - Chest pain [Recovered/Resolved]
  - Haemoglobin decreased [Unknown]
  - Aspartate aminotransferase increased [Unknown]
  - Fatigue [Unknown]
  - Supraventricular tachycardia [Unknown]
  - Product supply issue [Unknown]
  - Off label use [Unknown]

NARRATIVE: CASE EVENT DATE: 20200705
